FAERS Safety Report 8137511-1 (Version None)
Quarter: 2012Q1

REPORT INFORMATION
  Report Type: 
  Country: None (occurrence: None)
  Receive Date: 20120215
  Receipt Date: 20120203
  Transmission Date: 20120608
  Serious: Yes (Other)
  Sender: FDA-Public Use
  Company Number: JP-JNJFOC-20120104682

PATIENT
  Sex: Female
  Weight: 69 kg

DRUGS (3)
  1. METHOTREXATE [Concomitant]
     Indication: RHEUMATOID ARTHRITIS
     Dosage: 6 MG/W
     Route: 048
     Dates: start: 20110701, end: 20111216
  2. REMICADE [Suspect]
     Indication: RHEUMATOID ARTHRITIS
     Dosage: THIRD INFUSION
     Route: 042
  3. REMICADE [Suspect]
     Route: 042
     Dates: start: 20110819

REACTIONS (4)
  - DISSEMINATED TUBERCULOSIS [None]
  - HEPATIC FUNCTION ABNORMAL [None]
  - MORAXELLA INFECTION [None]
  - HAEMOPHILUS INFECTION [None]
